FAERS Safety Report 13400774 (Version 1)
Quarter: 2017Q2

REPORT INFORMATION
  Report Type: Report from Study
  Country: US (occurrence: US)
  Receive Date: 20170404
  Receipt Date: 20170404
  Transmission Date: 20170830
  Serious: Yes (Hospitalization)
  Sender: FDA-Public Use
  Company Number: PHHO2012US012491

PATIENT
  Age: 62 Year
  Sex: Male
  Weight: 85.4 kg

DRUGS (11)
  1. LUNESTA [Concomitant]
     Active Substance: ESZOPICLONE
     Indication: INSOMNIA
     Dosage: 2 MG, QD
     Route: 048
  2. EFFEXOR [Concomitant]
     Active Substance: VENLAFAXINE HYDROCHLORIDE
     Indication: HOT FLUSH
     Dosage: 3.75 MG, QD
     Route: 048
     Dates: start: 20120529
  3. PLAVIX [Concomitant]
     Active Substance: CLOPIDOGREL BISULFATE
     Indication: MYOCARDIAL INFARCTION
     Dosage: 75 MG, QD
     Route: 048
     Dates: start: 2006
  4. EVEROLIMUS [Suspect]
     Active Substance: EVEROLIMUS
     Indication: PROSTATE CANCER
     Dosage: 10 MG, QD
     Route: 048
     Dates: start: 20120626, end: 20120819
  5. VICODIN [Concomitant]
     Active Substance: ACETAMINOPHEN\HYDROCODONE BITARTRATE
     Indication: ARTHRALGIA
     Dosage: 1 DF, (5-500 MG 0.5 TAB PRN)
     Route: 048
  6. PEPCID [Concomitant]
     Active Substance: FAMOTIDINE
     Indication: ANTACID THERAPY
     Dosage: 20 MG, QD
     Route: 048
  7. COMPARATOR BICALUTAMIDE [Suspect]
     Active Substance: BICALUTAMIDE
     Indication: PROSTATE CANCER
     Dosage: 50 MG, QD
     Route: 048
     Dates: start: 20120626
  8. NO TREATMENT RECEIVED [Suspect]
     Active Substance: UNSPECIFIED INGREDIENT
     Indication: PROSTATE CANCER
     Dosage: NO TREATMENT
     Route: 065
  9. AZILSARTAN MEDOXOMIL [Concomitant]
     Active Substance: AZILSARTAN KAMEDOXOMIL
     Indication: BLOOD PRESSURE INCREASED
     Dosage: 20 MG, QD
     Route: 048
  10. PRAVACHOL [Concomitant]
     Active Substance: PRAVASTATIN SODIUM
     Indication: DYSLIPIDAEMIA
     Dosage: 40 MG, QD
     Route: 048
     Dates: start: 20120629
  11. DENOSUMAB [Concomitant]
     Active Substance: DENOSUMAB
     Indication: PROPHYLAXIS
     Dosage: 120MG/1.7ML Q4 WEEKS
     Route: 058
     Dates: start: 20120406

REACTIONS (12)
  - Unevaluable event [None]
  - Nausea [Not Recovered/Not Resolved]
  - Blood creatine phosphokinase increased [None]
  - Pneumonia [Not Recovered/Not Resolved]
  - Hypernatraemia [None]
  - Abdominal pain lower [Not Recovered/Not Resolved]
  - Hypocalcaemia [None]
  - Dyspnoea [None]
  - Computerised tomogram abnormal [None]
  - Back pain [Not Recovered/Not Resolved]
  - Infection [None]
  - Troponin I increased [None]

NARRATIVE: CASE EVENT DATE: 20120816
